FAERS Safety Report 26066351 (Version 1)
Quarter: 2025Q4

REPORT INFORMATION
  Report Type: Spontaneous
  Country: US (occurrence: US)
  Receive Date: 20251119
  Receipt Date: 20251119
  Transmission Date: 20260117
  Serious: Yes (Hospitalization)
  Sender: MERCK SHARP & DOHME LLC
  Company Number: US-009507513-2349314

PATIENT
  Age: 59 Year
  Sex: Female

DRUGS (3)
  1. PEMBROLIZUMAB [Suspect]
     Active Substance: PEMBROLIZUMAB
     Indication: Anaplastic thyroid cancer
  2. DABRAFENIB [Concomitant]
     Active Substance: DABRAFENIB
     Indication: Anaplastic thyroid cancer
  3. TRAMETINIB [Concomitant]
     Active Substance: TRAMETINIB
     Indication: Anaplastic thyroid cancer

REACTIONS (1)
  - Immune-mediated encephalitis [Recovering/Resolving]
